FAERS Safety Report 4810841-4 (Version None)
Quarter: 2005Q4

REPORT INFORMATION
  Report Type: 
  Country: None (occurrence: None)
  Receive Date: 20051024
  Receipt Date: 20051011
  Transmission Date: 20060501
  Serious: Yes (Hospitalization)
  Sender: FDA-Public Use
  Company Number: 2002095811US

PATIENT
  Age: 63 Year
  Sex: Female
  Weight: 114.3065 kg

DRUGS (7)
  1. ELLENCE [Suspect]
     Indication: BREAST CANCER FEMALE
     Dosage: 160 MG (DAY 1/CYCLE 1), INTRAVENOUS
     Route: 042
     Dates: start: 20020215, end: 20020215
  2. DOCETAXEL (DOCETAXEL) [Suspect]
     Indication: BREAST CANCER FEMALE
     Dosage: 160 MG (DAY 1/CYCLE 1), INTRAVENOUS
     Route: 042
     Dates: start: 20020215, end: 20020215
  3. DECADRON [Suspect]
     Indication: ILL-DEFINED DISORDER
     Dosage: 16 MG (QD)
     Dates: start: 20020214
  4. NORVASC [Concomitant]
  5. AMARYL [Concomitant]
  6. TOPROL-XL [Concomitant]
  7. GLUCOSE (GLUCOSE) [Concomitant]

REACTIONS (19)
  - BACTERIA STOOL IDENTIFIED [None]
  - BACTERIAL INFECTION [None]
  - BLOOD CHLORIDE INCREASED [None]
  - BLOOD CREATININE INCREASED [None]
  - BLOOD PHOSPHORUS INCREASED [None]
  - BLOOD SODIUM INCREASED [None]
  - BLOOD UREA INCREASED [None]
  - BLOOD URINE PRESENT [None]
  - CANDIDIASIS [None]
  - DEHYDRATION [None]
  - FUNGUS STOOL IDENTIFIED [None]
  - GLUCOSE URINE PRESENT [None]
  - HAEMATOCRIT INCREASED [None]
  - HYPERGLYCAEMIA [None]
  - LOSS OF CONSCIOUSNESS [None]
  - MONOCYTE COUNT INCREASED [None]
  - MUCOSAL INFLAMMATION [None]
  - NEUTROPHIL COUNT DECREASED [None]
  - WHITE BLOOD CELL COUNT DECREASED [None]
